FAERS Safety Report 5212539-X (Version None)
Quarter: 2007Q1

REPORT INFORMATION
  Report Type: 
  Country: None (occurrence: None)
  Receive Date: 20070118
  Receipt Date: 20070109
  Transmission Date: 20070707
  Serious: Yes (Hospitalization)
  Sender: FDA-Public Use
  Company Number: IT-MERCK-0701USA01983

PATIENT
  Age: 43 Year
  Sex: Male

DRUGS (5)
  1. HEP-B-GAMMAGEE [Suspect]
     Indication: PROPHYLAXIS
     Route: 042
     Dates: start: 20040226, end: 20040227
  2. HEP-B-GAMMAGEE [Concomitant]
     Route: 042
     Dates: start: 20040228, end: 20040302
  3. HEP-B-GAMMAGEE [Concomitant]
     Route: 042
     Dates: start: 20040303, end: 20040304
  4. HEP-B-GAMMAGEE [Concomitant]
     Route: 042
     Dates: start: 20040305
  5. LAMIVUDINE [Suspect]
     Route: 065

REACTIONS (2)
  - DRUG INEFFECTIVE [None]
  - HEPATITIS B [None]
